FAERS Safety Report 14054111 (Version 8)
Quarter: 2019Q1

REPORT INFORMATION
  Report Type: Spontaneous
  Country: SK (occurrence: SK)
  Receive Date: 20171005
  Receipt Date: 20190211
  Transmission Date: 20190417
  Serious: Yes (Hospitalization, Other)
  Sender: FDA-Public Use
  Company Number: SK-AMGEN-SVKSP2017150551

PATIENT
  Age: 78 Year
  Sex: Female

DRUGS (19)
  1. ENBREL [Suspect]
     Active Substance: ETANERCEPT
     Indication: RHEUMATOID ARTHRITIS
     Dosage: 50 MG, QWK
     Route: 058
     Dates: start: 20150128, end: 20170530
  2. SORTIS [Concomitant]
     Active Substance: ATORVASTATIN
     Dosage: 80 MG, 1/2 TBL
  3. NOLPAZA [Concomitant]
     Active Substance: PANTOPRAZOLE SODIUM
     Dosage: 40 MG, 1 TBL, MORNING
  4. HYPNOGEN [Concomitant]
     Active Substance: ZOLPIDEM\ZOLPIDEM TARTRATE
     Dosage: 1 TBL
  5. CAVINTON [Concomitant]
     Active Substance: VINPOCETINE
     Dosage: 5 MG,  1-1-0
  6. FUROSEMID [Concomitant]
     Active Substance: FUROSEMIDE
     Dosage: 40 MG, 1 TBL
  7. ESSENTIALE N [Concomitant]
     Active Substance: PHOSPHOLIPID
     Dosage: UNK, 2X/DAY, 2X1
  8. MELOXICAM. [Concomitant]
     Active Substance: MELOXICAM
     Dosage: 15 MG, 2X 1/2
  9. PREDUCTAL [Concomitant]
     Active Substance: TRIMETAZIDINE DIHYDROCHLORIDE
     Dosage: 2X1 , 2X/DAY
  10. CONCOR [Concomitant]
     Active Substance: BISOPROLOL FUMARATE
     Dosage: 5 MG, 2X/DAY 1/2
  11. ACIDUM FOLICUM [Concomitant]
     Active Substance: FOLIC ACID
     Dosage: 1 TBL, WEEKLY
  12. CALCIUM [Concomitant]
     Active Substance: CALCIUM
     Dosage: 1 TBL, ALTERNATE DAY
  13. TRITACE [Concomitant]
     Active Substance: RAMIPRIL
     Dosage: 5 MG, 2X/DAY /1/2
  14. PREDNISON [Concomitant]
     Active Substance: PREDNISONE
     Indication: RHEUMATOID ARTHRITIS
     Dosage: 5 MG, UNK
     Route: 048
     Dates: start: 2010
  15. TREXAN [Concomitant]
     Active Substance: METHOTREXATE SODIUM
     Indication: RHEUMATOID ARTHRITIS
     Dosage: 10 MG, QWK
     Route: 048
  16. DEXA [Concomitant]
     Indication: OSTEOPENIA
     Dosage: UNK
     Dates: start: 2016
  17. PRADAXA [Concomitant]
     Active Substance: DABIGATRAN ETEXILATE MESYLATE
     Dosage: 110 MG, BID
     Dates: start: 201410
  18. ALPHA D3 [Concomitant]
     Active Substance: ALFACALCIDOL
     Dosage: 1 TBL, ALTERNATE DAY
  19. MENISERC [Concomitant]
     Dosage: 24 MG, 2X/DAY, 2X1

REACTIONS (3)
  - Non-Hodgkin^s lymphoma [Not Recovered/Not Resolved]
  - Rheumatoid arthritis [Unknown]
  - Bradycardia [Unknown]

NARRATIVE: CASE EVENT DATE: 201507
